FAERS Safety Report 4556571-8 (Version None)
Quarter: 2005Q1

REPORT INFORMATION
  Report Type: 
  Country: None (occurrence: None)
  Receive Date: 20050118
  Receipt Date: 20050105
  Transmission Date: 20050727
  Serious: Yes (Other)
  Sender: FDA-Public Use
  Company Number: 2005006149

PATIENT
  Age: 39 Year
  Sex: Male
  Weight: 136.0791 kg

DRUGS (1)
  1. NEURONTIN [Suspect]
     Indication: BACK PAIN
     Dosage: ORAL
     Route: 048
     Dates: start: 20040101, end: 20040101

REACTIONS (6)
  - DYSARTHRIA [None]
  - EATING DISORDER [None]
  - FEELING ABNORMAL [None]
  - MENTAL DISORDER [None]
  - PNEUMONIA [None]
  - STARING [None]
